FAERS Safety Report 12555081 (Version 1)
Quarter: 2016Q3

REPORT INFORMATION
  Report Type: Report from Study
  Country: US (occurrence: US)
  Receive Date: 20160714
  Receipt Date: 20160714
  Transmission Date: 20161109
  Serious: Yes (Other)
  Sender: FDA-Public Use
  Company Number: US-AMGEN-USASL2016089379

PATIENT
  Age: 68 Year
  Sex: Female

DRUGS (1)
  1. ENBREL [Suspect]
     Active Substance: ETANERCEPT
     Indication: PRODUCT USED FOR UNKNOWN INDICATION
     Dosage: UNK
     Route: 065

REACTIONS (6)
  - Skin discolouration [Unknown]
  - Walking aid user [Not Recovered/Not Resolved]
  - Irritability [Unknown]
  - Frustration tolerance decreased [Unknown]
  - Spondyloarthropathy [Unknown]
  - Back pain [Unknown]

NARRATIVE: CASE EVENT DATE: 2016
